FAERS Safety Report 25461951 (Version 2)
Quarter: 2025Q3

REPORT INFORMATION
  Report Type: Report from Study
  Country: US (occurrence: US)
  Receive Date: 20250620
  Receipt Date: 20250825
  Transmission Date: 20251020
  Serious: Yes (Other)
  Sender: NOVARTIS
  Company Number: US-002147023-NVSC2025US098565

PATIENT
  Age: 51 Year
  Sex: Female

DRUGS (1)
  1. KESIMPTA [Suspect]
     Active Substance: OFATUMUMAB
     Indication: Product used for unknown indication
     Route: 065

REACTIONS (9)
  - Thrombosis [Unknown]
  - Fatigue [Unknown]
  - Illness [Unknown]
  - Weight decreased [Unknown]
  - Ill-defined disorder [Unknown]
  - Pain [Unknown]
  - Emotional distress [Unknown]
  - Stress [Unknown]
  - Frustration tolerance decreased [Unknown]
